FAERS Safety Report 12045582 (Version 1)
Quarter: 2016Q1

REPORT INFORMATION
  Report Type: Spontaneous
  Country: FR (occurrence: FR)
  Receive Date: 20160208
  Receipt Date: 20160208
  Transmission Date: 20160526
  Serious: Yes (Hospitalization)
  Sender: FDA-Public Use
  Company Number: FR-TEVA-630552ISR

PATIENT
  Age: 22 Year
  Sex: Male
  Weight: 60 kg

DRUGS (11)
  1. SOLU-MEDROL [Concomitant]
     Active Substance: METHYLPREDNISOLONE SODIUM SUCCINATE
     Indication: B-CELL LYMPHOMA
     Dates: start: 20151110, end: 20151114
  2. PERFALGAN [Concomitant]
     Active Substance: ACETAMINOPHEN
  3. DOXORUBICINE TEVA [Suspect]
     Active Substance: DOXORUBICIN
     Indication: B-CELL LYMPHOMA
     Route: 041
     Dates: start: 20151110, end: 20151110
  4. MABTHERA [Suspect]
     Active Substance: RITUXIMAB
     Indication: B-CELL LYMPHOMA
     Route: 041
     Dates: start: 20151110, end: 20151110
  5. ENDOXAN [Suspect]
     Active Substance: CYCLOPHOSPHAMIDE
     Indication: B-CELL LYMPHOMA
     Route: 041
     Dates: start: 20151110, end: 20151110
  6. UROMITEXAN [Concomitant]
     Active Substance: MESNA
     Dates: start: 20151110, end: 20151110
  7. ZOPHREN [Concomitant]
     Active Substance: ONDANSETRON
  8. POLARAMINE [Concomitant]
     Active Substance: DEXCHLORPHENIRAMINE MALEATE
     Indication: HYPERSENSITIVITY
     Dates: start: 20151110, end: 20151114
  9. BLEOMYCINE BELLON 15 MG [Suspect]
     Active Substance: BLEOMYCIN SULFATE
     Indication: B-CELL LYMPHOMA
     Route: 041
     Dates: start: 20151110, end: 20151114
  10. ELDISINE [Suspect]
     Active Substance: VINDESINE SULFATE
     Indication: B-CELL LYMPHOMA
     Route: 041
     Dates: start: 20151110, end: 20151114
  11. METHOTREXATE BIODIM [Suspect]
     Active Substance: METHOTREXATE
     Route: 039
     Dates: start: 20151110, end: 20151110

REACTIONS (1)
  - Febrile bone marrow aplasia [Recovered/Resolved]

NARRATIVE: CASE EVENT DATE: 20151119
